FAERS Safety Report 11059206 (Version 3)
Quarter: 2015Q2

REPORT INFORMATION
  Report Type: Report from Study
  Country: DE (occurrence: DE)
  Receive Date: 20150423
  Receipt Date: 20150428
  Transmission Date: 20150821
  Serious: Yes (Hospitalization)
  Sender: FDA-Public Use
  Company Number: DE-ROCHE-1567337

PATIENT
  Sex: Male
  Weight: 65 kg

DRUGS (5)
  1. CIPROBAY [Concomitant]
     Active Substance: CIPROFLOXACIN
     Route: 048
     Dates: start: 20150417
  2. OBINUTUZUMAB [Suspect]
     Active Substance: OBINUTUZUMAB
     Indication: CHRONIC LYMPHOCYTIC LEUKAEMIA
     Dosage: THE LAST DOSE PRIOR TO THE EXSICCOSIS WAS ADMINISTERED ON 14/APR/2015
     Route: 042
     Dates: start: 20150413
  3. FLUDARABINE [Suspect]
     Active Substance: FLUDARABINE PHOSPHATE
     Indication: CHRONIC LYMPHOCYTIC LEUKAEMIA
     Dosage: THE LAST DOSE PRIOR TO THE EXSICCOSIS WAS ADMINISTERED ON 16/APR/2015
     Route: 042
     Dates: start: 20150415
  4. CYCLOPHOSPHAMIDE. [Suspect]
     Active Substance: CYCLOPHOSPHAMIDE
     Indication: CHRONIC LYMPHOCYTIC LEUKAEMIA
     Dosage: THE LAST DOSE PRIOR TO THE EXSICCOSIS WAS ADMINISTERED ON 16/APR/2015
     Route: 042
     Dates: start: 20150415
  5. TAMSULOSIN [Concomitant]
     Active Substance: TAMSULOSIN
     Route: 048
     Dates: start: 20140214

REACTIONS (1)
  - Pneumonia [Not Recovered/Not Resolved]

NARRATIVE: CASE EVENT DATE: 20150422
